FAERS Safety Report 7153104-7 (Version None)
Quarter: 2010Q4

REPORT INFORMATION
  Report Type: 
  Country: None (occurrence: None)
  Receive Date: 20101213
  Receipt Date: 20101129
  Transmission Date: 20110411
  Serious: Yes (Other)
  Sender: FDA-Public Use
  Company Number: PHHY2010JP82062

PATIENT
  Sex: Male

DRUGS (5)
  1. DIOVAN [Suspect]
     Indication: HYPERTENSION
     Dosage: 80 MG, QD
     Route: 048
     Dates: start: 20080719, end: 20091008
  2. NITRODERM [Concomitant]
     Dosage: 25 MG
     Route: 062
     Dates: start: 20070817
  3. LIPITOR [Concomitant]
     Dosage: 5 MG
     Route: 048
     Dates: start: 20080417
  4. ASPIRIN [Concomitant]
     Dosage: 200 MG
     Route: 048
     Dates: start: 20070723
  5. PLAVIX [Concomitant]
     Dosage: 75 MG
     Route: 048
     Dates: start: 20070817

REACTIONS (2)
  - BLOOD PRESSURE DECREASED [None]
  - CARDIAC OPERATION [None]
